FAERS Safety Report 16062874 (Version 2)
Quarter: 2019Q1

REPORT INFORMATION
  Report Type: Spontaneous
  Country: US (occurrence: US)
  Receive Date: 20190312
  Receipt Date: 20190321
  Transmission Date: 20190418
  Serious: Yes (Hospitalization, Other)
  Sender: FDA-Public Use
  Company Number: US-PFIZER INC-2019105726

PATIENT
  Age: 34 Year
  Sex: Male

DRUGS (8)
  1. METRONIDAZOLE. [Suspect]
     Active Substance: METRONIDAZOLE
     Indication: DECUBITUS ULCER
     Dosage: UNK, (LAST 3 MONTHS)
  2. GABAPENTIN. [Concomitant]
     Active Substance: GABAPENTIN
     Indication: OSTEOMYELITIS
  3. METRONIDAZOLE. [Suspect]
     Active Substance: METRONIDAZOLE
     Indication: OSTEOMYELITIS
  4. OXYCODONE [Concomitant]
     Active Substance: OXYCODONE
     Indication: OSTEOMYELITIS
  5. AMOXICILLIN. [Concomitant]
     Active Substance: AMOXICILLIN
     Indication: OSTEOMYELITIS
  6. OXYCODONE [Concomitant]
     Active Substance: OXYCODONE
     Indication: DECUBITUS ULCER
     Dosage: UNK
  7. AMOXICILLIN. [Concomitant]
     Active Substance: AMOXICILLIN
     Indication: DECUBITUS ULCER
     Dosage: UNK, (LAST 3 MONTHS)
  8. GABAPENTIN. [Concomitant]
     Active Substance: GABAPENTIN
     Indication: DECUBITUS ULCER
     Dosage: UNK

REACTIONS (1)
  - Neurotoxicity [Recovered/Resolved]
